FAERS Safety Report 7745897-2 (Version None)
Quarter: 2011Q3

REPORT INFORMATION
  Report Type: 
  Country: None (occurrence: None)
  Receive Date: 20110913
  Receipt Date: 20110908
  Transmission Date: 20111222
  Serious: Yes (Other)
  Sender: FDA-Public Use
  Company Number: US-PFIZER INC-2011211464

PATIENT
  Sex: Female
  Weight: 68.027 kg

DRUGS (7)
  1. HYDROCODONE [Concomitant]
     Indication: PAIN
     Dosage: 7.5 MG, 3X/DAY
  2. CHANTIX [Suspect]
     Indication: SMOKING CESSATION THERAPY
     Dosage: 0.5 MG, DAILY
     Route: 048
     Dates: start: 20110905
  3. SIMVASTATIN [Suspect]
     Indication: BLOOD CHOLESTEROL ABNORMAL
     Dosage: 40 MG, DAILY
  4. RANITIDINE [Concomitant]
     Indication: DYSPEPSIA
     Dosage: 300 MG, ONCE DAILY,AS NEEDED
  5. XANAX [Concomitant]
     Indication: ANXIETY
     Dosage: 1 MG, 2X/DAY
     Dates: start: 20010101
  6. LISINOPRIL [Concomitant]
     Indication: HYPERTENSION
     Dosage: 40 MG, DAILY
     Dates: start: 20110106
  7. SPIRIVA [Concomitant]
     Indication: CHRONIC OBSTRUCTIVE PULMONARY DISEASE
     Dosage: UNK, ONE CAPSULE,DAILY
     Dates: start: 20110101

REACTIONS (2)
  - OROPHARYNGEAL BLISTERING [None]
  - IRRITABLE BOWEL SYNDROME [None]
